FAERS Safety Report 5335361-2 (Version None)
Quarter: 2007Q2

REPORT INFORMATION
  Report Type: 
  Country: None (occurrence: None)
  Receive Date: 20070525
  Receipt Date: 20070516
  Transmission Date: 20071010
  Serious: Yes (Other)
  Sender: FDA-Public Use
  Company Number: US-PFIZER INC-2007039791

PATIENT
  Sex: Female

DRUGS (2)
  1. ZYVOX [Suspect]
     Indication: BACTERIAL SEPSIS
  2. ZYVOX [Suspect]
     Indication: BACTERIAL SEPSIS

REACTIONS (2)
  - BLINDNESS [None]
  - TREMOR [None]
